FAERS Safety Report 19502247 (Version 3)
Quarter: 2021Q3

REPORT INFORMATION
  Report Type: Spontaneous
  Country: US (occurrence: US)
  Receive Date: 20210707
  Receipt Date: 20210820
  Transmission Date: 20211014
  Serious: No
  Sender: FDA-Public Use
  Company Number: US-PFIZER INC-2021672840

PATIENT
  Age: 5 Year
  Sex: Female
  Weight: 12.25 kg

DRUGS (2)
  1. GENOTROPIN [Suspect]
     Active Substance: SOMATROPIN
     Indication: SHORT STATURE
     Dosage: 0.6 MG DAILY
  2. GENOTROPIN [Suspect]
     Active Substance: SOMATROPIN
     Indication: PREMATURE BABY
     Dosage: 0.9 MG, DAILY INJECTION

REACTIONS (4)
  - Drug dose omission by device [Unknown]
  - Device breakage [Unknown]
  - Product prescribing error [Unknown]
  - Device use error [Unknown]

NARRATIVE: CASE EVENT DATE: 20210608
